FAERS Safety Report 12909395 (Version 1)
Quarter: 2016Q4

REPORT INFORMATION
  Report Type: Spontaneous
  Country: SI (occurrence: SI)
  Receive Date: 20161104
  Receipt Date: 20161104
  Transmission Date: 20170207
  Serious: Yes (Hospitalization, Other)
  Sender: FDA-Public Use
  Company Number: SI-AMGEN-SVNSP2016152894

PATIENT
  Age: 65 Year
  Sex: Male
  Weight: 80 kg

DRUGS (5)
  1. METHOTREXATE (METHOTREXATE SODIUM) [Concomitant]
     Active Substance: METHOTREXATE SODIUM
     Dosage: 10 MG, WEEKLY
  2. ENBREL [Suspect]
     Active Substance: ETANERCEPT
     Indication: ARTHROPATHY
     Dosage: 50 MG, WEEKLY
     Route: 058
     Dates: start: 20080618
  3. DICLO DUO [Concomitant]
     Active Substance: DICLOFENAC SODIUM
     Dosage: 75 MG, DAILY
  4. AMPRIL [Concomitant]
     Dosage: 5 MG, UNK
  5. TRAMAL [Concomitant]
     Active Substance: TRAMADOL
     Dosage: 100 MG, 1X/DAY

REACTIONS (1)
  - Cerebrovascular accident [Recovered/Resolved]

NARRATIVE: CASE EVENT DATE: 20160419
